FAERS Safety Report 8079574-8 (Version None)
Quarter: 2012Q1

REPORT INFORMATION
  Report Type: 
  Country: None (occurrence: None)
  Receive Date: 20120128
  Receipt Date: 20110830
  Transmission Date: 20120608
  Serious: No
  Sender: FDA-Public Use
  Company Number: US-ABBOTT-11P-163-0850329-00

PATIENT
  Age: 49 Year
  Sex: Male

DRUGS (2)
  1. HUMIRA [Suspect]
     Indication: PSORIASIS
     Dosage: INTERRUPTED
     Dates: start: 20110501, end: 20110805
  2. LASIX [Concomitant]
     Indication: FLUID RETENTION

REACTIONS (2)
  - NASOPHARYNGITIS [None]
  - SINUS CONGESTION [None]
